FAERS Safety Report 8393047-4 (Version None)
Quarter: 2012Q1

REPORT INFORMATION
  Report Type: 
  Country: None (occurrence: None)
  Receive Date: 20120323
  Receipt Date: 20110315
  Transmission Date: 20120608
  Serious: Yes (Other)
  Sender: FDA-Public Use
  Company Number: 163-21880-11030438

PATIENT
  Age: 55 Year
  Sex: Female
  Weight: 90 kg

DRUGS (16)
  1. FOLIC ACID [Concomitant]
  2. AMLODIPINE [Concomitant]
  3. METHYLPREDNISOLONE [Concomitant]
  4. CITRA 2 (CITRIC ACID) [Concomitant]
  5. GLYBURIDE [Concomitant]
  6. NEPHROCAPS [Concomitant]
  7. PROCRIT [Concomitant]
  8. MORPHINE [Concomitant]
  9. ZOVIRAX [Concomitant]
  10. CAPSAICIN [Concomitant]
  11. PROTONIX [Concomitant]
  12. REVLIMID [Suspect]
     Indication: MULTIPLE MYELOMA
     Dosage: 10 MG, 1 IN 1 D, PO; 5-10MG, DAILY, PO; 2.5 MG, 1 IN 2 D, PO
     Route: 048
     Dates: start: 20110301
  13. REVLIMID [Suspect]
     Indication: MULTIPLE MYELOMA
     Dosage: 10 MG, 1 IN 1 D, PO; 5-10MG, DAILY, PO; 2.5 MG, 1 IN 2 D, PO
     Route: 048
     Dates: start: 20100501, end: 20110216
  14. REVLIMID [Suspect]
     Indication: MULTIPLE MYELOMA
     Dosage: 10 MG, 1 IN 1 D, PO; 5-10MG, DAILY, PO; 2.5 MG, 1 IN 2 D, PO
     Route: 048
     Dates: start: 20100401
  15. METOCLOPRAMIDE [Concomitant]
  16. ALLOPURINOL [Concomitant]

REACTIONS (1)
  - PANCYTOPENIA [None]
